FAERS Safety Report 15819750 (Version 1)
Quarter: 2019Q1

REPORT INFORMATION
  Report Type: Spontaneous
  Country: IN (occurrence: IN)
  Receive Date: 20190114
  Receipt Date: 20190114
  Transmission Date: 20190417
  Serious: No
  Sender: FDA-Public Use
  Company Number: IN-ALEMBIC PHARMACUETICALS LIMITED-2018SCAL000995

PATIENT

DRUGS (1)
  1. ARIPIPRAZOLE. [Suspect]
     Active Substance: ARIPIPRAZOLE
     Indication: SCHIZOPHRENIA
     Dosage: 20 MG, QD (TAPPERED DOSE)

REACTIONS (3)
  - Hypersexuality [Recovered/Resolved]
  - Delusion of reference [Recovered/Resolved]
  - Excessive masturbation [Recovered/Resolved]
